FAERS Safety Report 16242307 (Version 1)
Quarter: 2019Q2

REPORT INFORMATION
  Report Type: Spontaneous
  Country: FR (occurrence: FR)
  Receive Date: 20190426
  Receipt Date: 20190426
  Transmission Date: 20190711
  Serious: Yes (Life-Threatening)
  Sender: FDA-Public Use
  Company Number: FR-ZYDUS-036010

PATIENT
  Age: 78 Year
  Sex: Female
  Weight: 62 kg

DRUGS (7)
  1. INDAPAMIDE. [Suspect]
     Active Substance: INDAPAMIDE
     Indication: HYPERTENSION
     Dosage: 1.5 MG PROLONGED-RELEASE FILM-COATED TABLET
     Route: 048
     Dates: end: 20190223
  2. METFORMIN [Suspect]
     Active Substance: METFORMIN HYDROCHLORIDE
     Indication: TYPE 2 DIABETES MELLITUS
     Route: 048
     Dates: end: 20190221
  3. PRAVASTATIN. [Suspect]
     Active Substance: PRAVASTATIN
     Indication: DYSLIPIDAEMIA
     Route: 048
     Dates: end: 20190313
  4. ZOPICLONE [Suspect]
     Active Substance: ZOPICLONE
     Indication: INSOMNIA
     Route: 048
     Dates: end: 20190221
  5. ACETYLSALICYLIC ACID [Suspect]
     Active Substance: ASPIRIN
     Indication: VASCULAR DEMENTIA
     Dosage: 75 MG POWDER FOR ORAL SOLUTION IN A SACHET
     Route: 048
     Dates: end: 20190221
  6. LEVOTHYROXINE. [Concomitant]
     Active Substance: LEVOTHYROXINE
     Indication: PRODUCT USED FOR UNKNOWN INDICATION
  7. RIVASTIGMINE. [Suspect]
     Active Substance: RIVASTIGMINE
     Indication: DEMENTIA ALZHEIMER^S TYPE
     Dosage: 4.6 MG / 24 H, TRANSDERMAL PATCH
     Route: 062
     Dates: end: 20190311

REACTIONS (3)
  - Hypokalaemia [Recovered/Resolved]
  - Electrocardiogram QT prolonged [Not Recovered/Not Resolved]
  - Torsade de pointes [Recovered/Resolved]

NARRATIVE: CASE EVENT DATE: 20190221
